FAERS Safety Report 11215428 (Version 3)
Quarter: 2020Q3

REPORT INFORMATION
  Report Type: Spontaneous
  Country: US (occurrence: US)
  Receive Date: 20150624
  Receipt Date: 20200909
  Transmission Date: 20201102
  Serious: Yes (Hospitalization, Other)
  Sender: FDA-Public Use
  Company Number: US-ELI_LILLY_AND_COMPANY-US201506007252

PATIENT
  Sex: Female

DRUGS (19)
  1. HUMULIN 70/30 [Suspect]
     Active Substance: INSULIN HUMAN
     Dosage: 20 U, EACH EVENING
     Route: 058
  2. HUMULIN 70/30 [Suspect]
     Active Substance: INSULIN HUMAN
     Dosage: 20 U, EACH EVENING
     Route: 058
  3. HUMULIN 70/30 [Suspect]
     Active Substance: INSULIN HUMAN
     Dosage: 40 U, EACH MORNING
     Route: 058
  4. HUMULIN 70/30 [Suspect]
     Active Substance: INSULIN HUMAN
     Dosage: 40 U, EACH MORNING
     Route: 058
  5. HUMULIN 70/30 [Suspect]
     Active Substance: INSULIN HUMAN
     Dosage: 40 U, EACH MORNING
     Route: 058
  6. HUMULIN 70/30 [Suspect]
     Active Substance: INSULIN HUMAN
     Indication: TYPE 2 DIABETES MELLITUS
     Dosage: 40 U, EACH MORNING
     Route: 058
     Dates: start: 2001
  7. LISINOPRIL. [Concomitant]
     Active Substance: LISINOPRIL
     Indication: PRODUCT USED FOR UNKNOWN INDICATION
  8. TRAJENTA [Concomitant]
     Active Substance: LINAGLIPTIN
     Indication: PRODUCT USED FOR UNKNOWN INDICATION
  9. HUMULIN 70/30 [Suspect]
     Active Substance: INSULIN HUMAN
     Dosage: 20 U, EACH EVENING
     Route: 058
  10. HUMULIN 70/30 [Suspect]
     Active Substance: INSULIN HUMAN
     Dosage: 20 U, EACH EVENING
     Route: 058
  11. HUMULIN 70/30 [Suspect]
     Active Substance: INSULIN HUMAN
     Dosage: 20 U, EACH EVENING
     Route: 058
  12. METOPROLOL. [Concomitant]
     Active Substance: METOPROLOL
     Indication: PRODUCT USED FOR UNKNOWN INDICATION
  13. ASPIRIN [ACETYLSALICYLIC ACID] [Concomitant]
     Active Substance: ASPIRIN
     Indication: PRODUCT USED FOR UNKNOWN INDICATION
     Dosage: 81 MG, UNK
  14. ISOSORBIDE MONONITRATE. [Concomitant]
     Active Substance: ISOSORBIDE MONONITRATE
     Indication: PRODUCT USED FOR UNKNOWN INDICATION
  15. NITROGLYCERIN. [Concomitant]
     Active Substance: NITROGLYCERIN
     Indication: PRODUCT USED FOR UNKNOWN INDICATION
  16. HUMULIN 70/30 [Suspect]
     Active Substance: INSULIN HUMAN
     Dosage: 40 U, EACH MORNING
     Route: 058
  17. PREVACID [Concomitant]
     Active Substance: LANSOPRAZOLE
     Indication: ULCER
  18. METFORMIN [Concomitant]
     Active Substance: METFORMIN HYDROCHLORIDE
     Indication: PRODUCT USED FOR UNKNOWN INDICATION
     Dosage: 1 DOSAGE FORM, DAILY
  19. SIMVASTATIN. [Concomitant]
     Active Substance: SIMVASTATIN
     Indication: PRODUCT USED FOR UNKNOWN INDICATION

REACTIONS (19)
  - Myocardial infarction [Unknown]
  - Myocardial infarction [Unknown]
  - Blindness [Not Recovered/Not Resolved]
  - Blood glucose increased [Recovered/Resolved]
  - Diabetic retinopathy [Unknown]
  - Joint dislocation [Unknown]
  - Cataract [Unknown]
  - Blood glucose increased [Unknown]
  - Myocardial infarction [Unknown]
  - Product tampering [Recovered/Resolved]
  - Wrong patient received product [Unknown]
  - Arthritis [Unknown]
  - Retinal detachment [Unknown]
  - Fall [Unknown]
  - Contusion [Unknown]
  - Myocardial infarction [Unknown]
  - Blood glucose increased [Unknown]
  - Blood glucose decreased [Unknown]
  - Drug ineffective [Unknown]

NARRATIVE: CASE EVENT DATE: 2003
